FAERS Safety Report 4703559-X (Version None)
Quarter: 2005Q2

REPORT INFORMATION
  Report Type: 
  Country: None (occurrence: None)
  Receive Date: 20050630
  Receipt Date: 20050623
  Transmission Date: 20051028
  Serious: Yes (Hospitalization)
  Sender: FDA-Public Use
  Company Number: BR-JNJFOC-20050606692

PATIENT
  Sex: Female

DRUGS (3)
  1. ORTHO EVRA [Suspect]
     Route: 062
  2. ORTHO EVRA [Suspect]
     Route: 062
  3. ORTHO EVRA [Suspect]
     Indication: CONTRACEPTION
     Route: 062

REACTIONS (3)
  - ABDOMINAL PAIN [None]
  - LUNG CONSOLIDATION [None]
  - METRORRHAGIA [None]
